FAERS Safety Report 16941078 (Version 1)
Quarter: 2019Q4

REPORT INFORMATION
  Report Type: Report from Study
  Country: US (occurrence: US)
  Receive Date: 20191021
  Receipt Date: 20191021
  Transmission Date: 20200122
  Serious: Yes (Hospitalization, Other)
  Sender: FDA-Public Use
  Company Number: US-PFIZER INC-2019449239

PATIENT
  Age: 79 Year
  Sex: Male
  Weight: 95 kg

DRUGS (31)
  1. NORVASC [Suspect]
     Active Substance: AMLODIPINE BESYLATE
     Dosage: UNK
     Dates: start: 201909, end: 20190930
  2. LEVOTHYROXINE. [Concomitant]
     Active Substance: LEVOTHYROXINE
     Indication: HYPOTHYROIDISM
     Dosage: UNK
  3. OMEPRAZOLE. [Concomitant]
     Active Substance: OMEPRAZOLE
     Indication: GASTROOESOPHAGEAL REFLUX DISEASE
     Dosage: UNK
  4. SUSTAIN [Concomitant]
     Indication: DRY EYE
     Dosage: UNK
  5. BRILINTA [Concomitant]
     Active Substance: TICAGRELOR
     Indication: ATRIAL FIBRILLATION
     Dosage: UNK
  6. HUMIRA [Suspect]
     Active Substance: ADALIMUMAB
     Indication: PSORIASIS
     Dosage: 40 MG, 1 IN 2 WK
     Route: 058
     Dates: start: 20190303, end: 201909
  7. TRIAMCINOLONE [Concomitant]
     Active Substance: TRIAMCINOLONE
     Indication: PSORIASIS
     Dosage: UNK
     Route: 061
  8. ASPIRIN [ACETYLSALICYLIC ACID] [Concomitant]
     Active Substance: ASPIRIN
     Indication: CARDIAC FAILURE CONGESTIVE
     Dosage: 81 MG, DAILY
  9. LIPITOR [Concomitant]
     Active Substance: ATORVASTATIN CALCIUM
     Indication: BLOOD CHOLESTEROL INCREASED
     Dosage: UNK
  10. FLONASE [MOMETASONE FUROATE] [Concomitant]
     Active Substance: MOMETASONE FUROATE
     Indication: RHINORRHOEA
     Dosage: UNK
  11. FOLIC ACID. [Concomitant]
     Active Substance: FOLIC ACID
     Indication: VITAMIN SUPPLEMENTATION
     Dosage: UNK
  12. ANORO ELLIPTA [Concomitant]
     Active Substance: UMECLIDINIUM BROMIDE\VILANTEROL TRIFENATATE
     Indication: CHRONIC OBSTRUCTIVE PULMONARY DISEASE
     Dosage: UNK
     Dates: start: 20190930
  13. VITAMIN E [Concomitant]
     Active Substance: .ALPHA.-TOCOPHEROL
     Indication: VITAMIN SUPPLEMENTATION
     Dosage: UNK
  14. MULTIVITAMIN + MINERAL [Concomitant]
     Active Substance: MINERALS\VITAMINS
     Dosage: UNK
  15. HUMIRA [Suspect]
     Active Substance: ADALIMUMAB
     Indication: PSORIATIC ARTHROPATHY
     Dosage: 40 MG, 1 IN 2 WK
     Route: 058
     Dates: start: 201910
  16. FISH OIL [Concomitant]
     Active Substance: FISH OIL
     Dosage: UNK
  17. VALTREX [Concomitant]
     Active Substance: VALACYCLOVIR HYDROCHLORIDE
     Indication: ORAL HERPES
     Dosage: UNK
  18. IMDUR [Concomitant]
     Active Substance: ISOSORBIDE MONONITRATE
     Indication: CORONARY ARTERY DISEASE
     Dosage: UNK
  19. ZOLPIDEX [Concomitant]
     Active Substance: ZOLPIDEM TARTRATE
     Dosage: UNK
  20. FERROUS SULFATE. [Concomitant]
     Active Substance: FERROUS SULFATE
     Indication: RED BLOOD CELL COUNT DECREASED
     Dosage: UNK
  21. LASIX [Concomitant]
     Active Substance: FUROSEMIDE
     Indication: FLUID RETENTION
     Dosage: UNK
  22. OXYGEN. [Concomitant]
     Active Substance: OXYGEN
     Indication: GASTROOESOPHAGEAL REFLUX DISEASE
     Dosage: UNK, 1X/DAY ( QHS (BEFORE BED) AND WITH EXERCISE (2 LIT))
     Route: 045
  23. RANEXA [Concomitant]
     Active Substance: RANOLAZINE
     Indication: CORONARY ARTERY DISEASE
     Dosage: UNK
  24. INCRUSE ELLIPTA [Concomitant]
     Active Substance: UMECLIDINIUM BROMIDE
     Indication: CHRONIC OBSTRUCTIVE PULMONARY DISEASE
     Dosage: UNK
     Dates: end: 20190930
  25. METOPROLOL. [Concomitant]
     Active Substance: METOPROLOL
     Indication: CARDIAC FAILURE CONGESTIVE
     Dosage: UNK
  26. LISINOPRIL. [Concomitant]
     Active Substance: LISINOPRIL
     Indication: HYPERTENSION
     Dosage: UNK
  27. VITAMIN C [Concomitant]
     Active Substance: ASCORBIC ACID
     Indication: VITAMIN SUPPLEMENTATION
     Dosage: UNK
  28. VITAMIN D3 [Concomitant]
     Active Substance: CHOLECALCIFEROL
     Indication: VITAMIN SUPPLEMENTATION
     Dosage: UNK
  29. ISOSORBIDE MONONITRATE. [Concomitant]
     Active Substance: ISOSORBIDE MONONITRATE
     Dosage: UNK
  30. COLACE [Concomitant]
     Active Substance: DOCUSATE SODIUM
     Indication: CONSTIPATION
     Dosage: UNK
  31. NITROGLYCERIN. [Concomitant]
     Active Substance: NITROGLYCERIN
     Indication: ANGINA PECTORIS
     Dosage: UNK
     Route: 060

REACTIONS (15)
  - Cardiac arrest [Recovered/Resolved]
  - Loss of consciousness [Recovered/Resolved]
  - Pneumonia [Recovered/Resolved]
  - Cough [Unknown]
  - Coronary artery disease [Recovered/Resolved]
  - Headache [Unknown]
  - Tremor [Unknown]
  - Furuncle [Recovering/Resolving]
  - Psoriasis [Recovering/Resolving]
  - Coronary artery occlusion [Recovered/Resolved]
  - Chronic obstructive pulmonary disease [Recovered/Resolved]
  - Dizziness [Recovered/Resolved]
  - Dehydration [Recovered/Resolved]
  - Dyspnoea [Unknown]
  - Heart valve incompetence [Recovered/Resolved]

NARRATIVE: CASE EVENT DATE: 2019
